FAERS Safety Report 21293946 (Version 2)
Quarter: 2022Q3

REPORT INFORMATION
  Report Type: Report from Study
  Country: US (occurrence: US)
  Receive Date: 20220905
  Receipt Date: 20220912
  Transmission Date: 20221026
  Serious: Yes (Death, Life-Threatening, Hospitalization)
  Sender: FDA-Public Use
  Company Number: US-JAZZ-2022-US-028118

PATIENT
  Age: 61 Year
  Sex: Male
  Weight: 71.927 kg

DRUGS (14)
  1. LURBINECTEDIN [Suspect]
     Active Substance: LURBINECTEDIN
     Indication: Transitional cell carcinoma
     Dosage: 5.9 MILLIGRAM, Q3W, C1D1
     Route: 042
     Dates: start: 20220803, end: 20220803
  2. SODIUM CHLORIDE [Concomitant]
     Active Substance: SODIUM CHLORIDE
     Dosage: 1 LITER X 3DAYS
     Route: 042
     Dates: start: 20220810, end: 20220818
  3. OMEPRAZOLE [Concomitant]
     Active Substance: OMEPRAZOLE
     Dosage: 40 MILLIGRAM, QD
     Route: 048
     Dates: start: 20200908
  4. ZYRTEC [Concomitant]
     Active Substance: CETIRIZINE HYDROCHLORIDE
     Dosage: 10 MILLIGRAM, PRN
     Route: 048
     Dates: start: 20200908
  5. OXYCODONE AND ACETAMINOPHEN [Concomitant]
     Active Substance: ACETAMINOPHEN\OXYCODONE HYDROCHLORIDE
     Dosage: 5/325 MILLIGRAM, QID (FOUR TIMES A DAY) PRN (AS NEEDED)
     Route: 048
     Dates: start: 20200908
  6. OXYCONTIN [Concomitant]
     Active Substance: OXYCODONE HYDROCHLORIDE
     Dosage: 20 MILLIGRAM, BID (TWO TIMES A DAY) PRN (AS NEEDED)
     Route: 048
     Dates: start: 20200908
  7. TYLENOL [Concomitant]
     Active Substance: ACETAMINOPHEN
     Dosage: 100 MILLIGRAM PER MILLILITRE, PRN (AS NEEDED)
     Route: 048
     Dates: start: 20200908
  8. METOPROLOL SUCCINATE [Concomitant]
     Active Substance: METOPROLOL SUCCINATE
     Dosage: 50 MILLIGRAM, QD (EVERY DAY)
     Route: 048
     Dates: start: 20201222
  9. METHOCARBAMOL [Concomitant]
     Active Substance: METHOCARBAMOL
     Dosage: 500 MILLIGRAM, QD (EVERY DAY)
     Route: 048
     Dates: start: 20211026
  10. COMPAZINE [Concomitant]
     Active Substance: PROCHLORPERAZINE MALEATE
     Dosage: 10 MILLIGRAM, TID (THREE TIMES A DAY)
     Route: 048
     Dates: start: 20220721
  11. ZOMETA [Concomitant]
     Active Substance: ZOLEDRONIC ACID
     Dosage: 4 MILLIGRAM PER 5 MILLILITRE, QM (EVERY MONTH)
     Route: 042
     Dates: start: 20220721
  12. SODIUM CHLORIDE [Concomitant]
     Active Substance: SODIUM CHLORIDE
     Dosage: 1000 MILLIGRAM, QD (EVERY DAY)
     Route: 048
     Dates: start: 20220818
  13. DEXAMETHASONE [Concomitant]
     Active Substance: DEXAMETHASONE
     Dosage: 4 MILLIGRAM
  14. ONDANSETRON [Concomitant]
     Active Substance: ONDANSETRON
     Dosage: 8 MILLIGRAM

REACTIONS (1)
  - Sepsis [Fatal]

NARRATIVE: CASE EVENT DATE: 20220822
